FAERS Safety Report 10412933 (Version 2)
Quarter: 2014Q4

REPORT INFORMATION
  Report Type: Spontaneous
  Country: US (occurrence: US)
  Receive Date: 20140827
  Receipt Date: 20141027
  Transmission Date: 20150528
  Serious: Yes (Life-Threatening, Hospitalization, Disabling, Other)
  Sender: FDA-Public Use
  Company Number: US-BAYER-2014-127470

PATIENT
  Age: 25 Year
  Sex: Female
  Weight: 88.44 kg

DRUGS (2)
  1. DEPO-PROVERA [Concomitant]
     Active Substance: MEDROXYPROGESTERONE ACETATE
     Dosage: UNK
     Dates: start: 201301, end: 201402
  2. MIRENA [Suspect]
     Active Substance: LEVONORGESTREL
     Indication: CONTRACEPTION
     Dosage: 20 MCG/24HR, CONT
     Route: 015
     Dates: start: 20080903, end: 20130312

REACTIONS (15)
  - Depression [None]
  - Anhedonia [None]
  - Device issue [None]
  - Abdominal pain lower [None]
  - Pelvic pain [None]
  - General physical health deterioration [None]
  - Anxiety [None]
  - Gait disturbance [None]
  - Genital haemorrhage [None]
  - Device dislocation [None]
  - Polymenorrhoea [None]
  - Depressed mood [None]
  - Uterine perforation [None]
  - Emotional distress [None]
  - Injury [None]

NARRATIVE: CASE EVENT DATE: 200909
